FAERS Safety Report 15728628 (Version 1)
Quarter: 2018Q4

REPORT INFORMATION
  Report Type: Other
  Country: ES (occurrence: ES)
  Receive Date: 20181217
  Receipt Date: 20181217
  Transmission Date: 20190205
  Serious: Yes (Other)
  Sender: FDA-Public Use
  Company Number: ES-APOTEX-2018AP027024

PATIENT
  Age: 79 Year
  Sex: Male

DRUGS (3)
  1. ESPIDIFEN [Suspect]
     Active Substance: IBUPROFEN
     Indication: PERIODONTITIS
     Dosage: 600 MG, TID
     Route: 048
     Dates: start: 20180729, end: 20180802
  2. AUGMENTINE                         /00756801/ [Suspect]
     Active Substance: AMOXICILLIN\CLAVULANATE POTASSIUM
     Indication: PERIODONTITIS
     Dosage: 875 MG, TID
     Route: 048
     Dates: start: 20180729, end: 20180802
  3. ACETAMINOPHEN/TRAMADOL [Suspect]
     Active Substance: ACETAMINOPHEN\TRAMADOL
     Indication: PERIODONTITIS
     Dosage: 37.5 MG, TID
     Route: 048
     Dates: start: 20180729, end: 20180802

REACTIONS (1)
  - Acute kidney injury [Recovered/Resolved]

NARRATIVE: CASE EVENT DATE: 20180802
